FAERS Safety Report 8309441-3 (Version None)
Quarter: 2012Q2

REPORT INFORMATION
  Report Type: 
  Country: None (occurrence: None)
  Receive Date: 20120420
  Receipt Date: 20120409
  Transmission Date: 20120825
  Serious: Yes (Other)
  Sender: FDA-Public Use
  Company Number: AUR-APL-2012-01814

PATIENT
  Age: 51 Year
  Sex: Female
  Weight: 79 kg

DRUGS (3)
  1. OMEPRAZOLE [Suspect]
     Indication: GASTROOESOPHAGEAL REFLUX DISEASE
     Dosage: (20 MG, 1 D)
  2. METFORMIN HCL [Suspect]
     Indication: DIABETES MELLITUS
     Dosage: (500 MG, 1 D)
  3. LIPITOR [Suspect]
     Indication: BLOOD CHOLESTEROL INCREASED
     Dosage: (20 MG, 1 D), ORAL
     Route: 048

REACTIONS (4)
  - JOINT INJURY [None]
  - PAIN [None]
  - MYALGIA [None]
  - TIBIA FRACTURE [None]
